FAERS Safety Report 7296425-X (Version None)
Quarter: 2011Q1

REPORT INFORMATION
  Report Type: 
  Country: None (occurrence: None)
  Receive Date: 20110216
  Receipt Date: 20110204
  Transmission Date: 20110831
  Serious: Yes (Other)
  Sender: FDA-Public Use
  Company Number: BR-BRISTOL-MYERS SQUIBB COMPANY-15536147

PATIENT
  Age: 49 Year
  Sex: Female
  Weight: 105 kg

DRUGS (3)
  1. NATRILIX [Concomitant]
  2. COUMADIN [Suspect]
     Indication: THROMBOSIS
     Dosage: 1 DF = MON,WED,FRI DOSE:2.5MG OTHER DAYS:3MG-REACHED 5 MG DY.
     Route: 048
     Dates: start: 20081109
  3. OMEPRAZOLE [Concomitant]

REACTIONS (2)
  - INTERNATIONAL NORMALISED RATIO FLUCTUATION [None]
  - CATARACT [None]
